FAERS Safety Report 17061515 (Version 1)
Quarter: 2019Q4

REPORT INFORMATION
  Report Type: Spontaneous
  Country: CA (occurrence: CA)
  Receive Date: 20191121
  Receipt Date: 20191121
  Transmission Date: 20200122
  Serious: Yes (Hospitalization, Other)
  Sender: FDA-Public Use
  Company Number: CA-EMD SERONO-9121373

PATIENT
  Age: 46 Year
  Sex: Female
  Weight: 79 kg

DRUGS (3)
  1. AVELUMAB [Suspect]
     Active Substance: AVELUMAB
     Indication: BREAST CANCER METASTATIC
     Route: 042
     Dates: start: 20190208, end: 20190920
  2. HALAVEN [Concomitant]
     Active Substance: ERIBULIN MESYLATE
     Indication: BREAST CANCER METASTATIC
     Dosage: 2.5 MG SYRINGE (DAY 1, DAY 8 OF 21 DAYS CYCLE)
     Dates: start: 20190920
  3. ERBITUX [Concomitant]
     Active Substance: CETUXIMAB
     Indication: SQUAMOUS CELL BREAST CARCINOMA
     Dosage: 229 ML/HR IN NS
     Dates: start: 20190920

REACTIONS (5)
  - Skin bacterial infection [Recovering/Resolving]
  - Pyrexia [Recovered/Resolved]
  - Malaise [Recovered/Resolved]
  - Off label use [Unknown]
  - Sepsis [Recovered/Resolved]

NARRATIVE: CASE EVENT DATE: 20191001
